FAERS Safety Report 17668900 (Version 1)
Quarter: 2020Q2

REPORT INFORMATION
  Report Type: Spontaneous
  Country: US (occurrence: US)
  Receive Date: 20200415
  Receipt Date: 20200415
  Transmission Date: 20200713
  Serious: No
  Sender: FDA-Public Use
  Company Number: US-DRREDDYS-USA/USA/20/0121852

PATIENT
  Age: 49 Year
  Sex: Male
  Weight: 63.9 kg

DRUGS (1)
  1. METOPROLOL SUCCINATE. [Suspect]
     Active Substance: METOPROLOL SUCCINATE
     Indication: ARRHYTHMIA
     Route: 048
     Dates: start: 20200210, end: 20200219

REACTIONS (4)
  - Sexual dysfunction [Unknown]
  - Poor peripheral circulation [Unknown]
  - Pallor [Unknown]
  - Dizziness [Unknown]
